FAERS Safety Report 26151898 (Version 1)
Quarter: 2025Q4

REPORT INFORMATION
  Report Type: Spontaneous
  Country: US (occurrence: US)
  Receive Date: 20251214
  Receipt Date: 20251214
  Transmission Date: 20260118
  Serious: No
  Sender: UNITED THERAPEUTICS
  Company Number: US-UNITED THERAPEUTICS-UNT-2025-041780

PATIENT
  Age: 55 Year
  Sex: Female

DRUGS (3)
  1. TYVASO DPI [Suspect]
     Active Substance: TREPROSTINIL
     Indication: Pulmonary arterial hypertension
     Dosage: UNK
  2. YUTREPIA [Suspect]
     Active Substance: TREPROSTINIL SODIUM
     Indication: Pulmonary arterial hypertension
     Dosage: 26.5 UNK (INHALE 2 BREATHS PER CAPSULE)
     Dates: start: 202507, end: 202507
  3. YUTREPIA [Suspect]
     Active Substance: TREPROSTINIL SODIUM
     Dosage: 79.5 ?G, QID (INHALE 2 BREATHS PER CAPSULE)
     Dates: start: 202507

REACTIONS (6)
  - Hypoaesthesia oral [Unknown]
  - Paraesthesia oral [Unknown]
  - Tongue ulceration [Unknown]
  - Ear swelling [Unknown]
  - Fatigue [Unknown]
  - Dizziness [Unknown]

NARRATIVE: CASE EVENT DATE: 20250101
